FAERS Safety Report 9520811 (Version 1)
Quarter: 2013Q3

REPORT INFORMATION
  Report Type: Spontaneous
  Country: US (occurrence: None)
  Receive Date: 20130826
  Receipt Date: 20130826
  Transmission Date: 20140515
  Serious: Yes (Death)
  Sender: FDA-Public Use
  Company Number: 2013037545

PATIENT
  Age: 27 Year
  Sex: Female

DRUGS (1)
  1. INTRAVENOUS IMMUNOGLOBULIN [Suspect]
     Indication: IMMUNODEFICIENCY COMMON VARIABLE

REACTIONS (2)
  - Drug effect decreased [None]
  - Infection [None]
